FAERS Safety Report 4477640-7 (Version None)
Quarter: 2004Q4

REPORT INFORMATION
  Report Type: 
  Country: None (occurrence: None)
  Receive Date: 20041014
  Receipt Date: 20041001
  Transmission Date: 20050328
  Serious: Yes (Other)
  Sender: FDA-Public Use
  Company Number: 2004075348

PATIENT
  Sex: Female

DRUGS (1)
  1. ZYRTEC [Suspect]
     Indication: MULTIPLE ALLERGIES
     Dosage: (10 MG)

REACTIONS (10)
  - BLINDNESS UNILATERAL [None]
  - COLOUR BLINDNESS [None]
  - DIZZINESS [None]
  - DRY EYE [None]
  - EYE PAIN [None]
  - HEADACHE [None]
  - NAUSEA [None]
  - OPTIC NEURITIS [None]
  - PHOTOPHOBIA [None]
  - VISION BLURRED [None]
